FAERS Safety Report 6213351-5 (Version None)
Quarter: 2009Q2

REPORT INFORMATION
  Report Type: 
  Country: None (occurrence: None)
  Receive Date: 20090601
  Receipt Date: 20090601
  Transmission Date: 20091009
  Serious: Yes (Other)
  Sender: FDA-Public Use
  Company Number: None

PATIENT
  Age: 17 Year
  Sex: Female
  Weight: 65.7716 kg

DRUGS (1)
  1. LISTERINE WHITENING PFIZER [Suspect]
     Indication: DENTAL CARE
     Dosage: 3 TEASPOONFULS MORNING AND NIGHT PO ONE DAY, ONE TIME
     Route: 048
     Dates: start: 20090416, end: 20090416

REACTIONS (3)
  - HYPOPHAGIA [None]
  - SPEECH DISORDER [None]
  - THERMAL BURN [None]
